FAERS Safety Report 4627167-4 (Version None)
Quarter: 2005Q2

REPORT INFORMATION
  Report Type: 
  Country: None (occurrence: None)
  Receive Date: 20050405
  Receipt Date: 20050329
  Transmission Date: 20051028
  Serious: Yes (Other)
  Sender: FDA-Public Use
  Company Number: DK-GLAXOSMITHKLINE-B0376672A

PATIENT
  Age: 41 Year
  Sex: Female

DRUGS (1)
  1. ZYBAN [Suspect]
     Dosage: 300MG PER DAY
     Route: 065

REACTIONS (6)
  - DELUSION [None]
  - FLUSHING [None]
  - PRURITUS [None]
  - PSORIASIS [None]
  - SWELLING [None]
  - URTICARIA [None]
